FAERS Safety Report 4296964-X (Version None)
Quarter: 2004Q1

REPORT INFORMATION
  Report Type: 
  Country: None (occurrence: None)
  Receive Date: 20040126
  Receipt Date: 20030828
  Transmission Date: 20041129
  Serious: No
  Sender: FDA-Public Use
  Company Number: USA030845741

PATIENT
  Age: 10 Year
  Sex: Female
  Weight: 27 kg

DRUGS (2)
  1. STRATTERA [Suspect]
     Indication: ATTENTION DEFICIT/HYPERACTIVITY DISORDER
     Dosage: 40 MG/ IN THE MORNING
     Dates: start: 20030601, end: 20030827
  2. CONCERTA [Concomitant]

REACTIONS (4)
  - DRUG INEFFECTIVE [None]
  - EXCITABILITY [None]
  - FLUSHING [None]
  - MEMORY IMPAIRMENT [None]
